FAERS Safety Report 24531373 (Version 1)
Quarter: 2024Q4

REPORT INFORMATION
  Report Type: Report from Study
  Country: US (occurrence: US)
  Receive Date: 20241022
  Receipt Date: 20241022
  Transmission Date: 20250114
  Serious: No
  Sender: ROCHE
  Company Number: US-ROCHE-3277298

PATIENT
  Age: 37 Year
  Sex: Female

DRUGS (3)
  1. PULMOZYME [Suspect]
     Active Substance: DORNASE ALFA
     Indication: Bronchiectasis
     Dosage: NEBULIZE THE CONTENTS OF 1 VIAL(S) TWICE A DAY
     Route: 045
  2. PULMOZYME [Suspect]
     Active Substance: DORNASE ALFA
     Indication: Bacterial infection
     Dosage: INHALE 1 VIAL VIA NEBULIZER TWICE DAILY
     Route: 055
     Dates: start: 20231120
  3. PULMOZYME [Suspect]
     Active Substance: DORNASE ALFA
     Indication: Lower respiratory tract infection
     Route: 065

REACTIONS (2)
  - Off label use [Unknown]
  - No adverse event [Unknown]
